FAERS Safety Report 6620152-2 (Version None)
Quarter: 2010Q1

REPORT INFORMATION
  Report Type: 
  Country: None (occurrence: None)
  Receive Date: 20100309
  Receipt Date: 20100303
  Transmission Date: 20100710
  Serious: Yes (Death, Hospitalization, Other)
  Sender: FDA-Public Use
  Company Number: IN-ELI_LILLY_AND_COMPANY-IN201003001192

PATIENT
  Age: 79 Year
  Sex: Male

DRUGS (5)
  1. XIGRIS [Suspect]
     Indication: SEPTIC SHOCK
     Dosage: UNK, UNKNOWN
     Route: 042
     Dates: start: 20100302
  2. TARGOCID [Concomitant]
     Dosage: UNK, UNKNOWN
     Route: 065
     Dates: start: 20100228
  3. MEROPENEM [Concomitant]
     Dosage: UNK, UNKNOWN
     Route: 065
     Dates: start: 20100228
  4. PANTOPRAZOLE [Concomitant]
     Dosage: UNK, UNKNOWN
     Route: 065
     Dates: start: 20100228
  5. CHEMOTHERAPEUTICS NOS [Concomitant]
     Dosage: UNK, UNKNOWN
     Route: 065
     Dates: start: 20100201

REACTIONS (2)
  - CARDIAC ARREST [None]
  - HYPOTENSION [None]
